FAERS Safety Report 20426928 (Version 1)
Quarter: 2022Q1

REPORT INFORMATION
  Report Type: Report from Study
  Country: US (occurrence: US)
  Receive Date: 20220204
  Receipt Date: 20220204
  Transmission Date: 20220424
  Serious: No
  Sender: FDA-Public Use
  Company Number: US-EXELIXIS-CABO-21046388

PATIENT
  Sex: Male

DRUGS (1)
  1. CABOMETYX [Suspect]
     Active Substance: CABOZANTINIB S-MALATE
     Indication: Thyroid cancer
     Dosage: 40 MG, QD (20MG TWO TABS/DAY)

REACTIONS (5)
  - Flatulence [Unknown]
  - Ageusia [Unknown]
  - Tongue ulceration [Unknown]
  - Asthenia [Unknown]
  - Fatigue [Unknown]
